FAERS Safety Report 5708282-0 (Version None)
Quarter: 2008Q2

REPORT INFORMATION
  Report Type: 
  Country: None (occurrence: None)
  Receive Date: 20080417
  Receipt Date: 20080409
  Transmission Date: 20081010
  Serious: Yes (Death, Hospitalization)
  Sender: FDA-Public Use
  Company Number: US-MERCK-0804USA00713

PATIENT
  Age: 17 Year
  Sex: Male

DRUGS (6)
  1. SINGULAIR [Suspect]
     Indication: HYPERSENSITIVITY
     Route: 048
     Dates: start: 19990305
  2. SINGULAIR [Suspect]
     Route: 048
     Dates: end: 20060101
  3. SINGULAIR [Suspect]
     Indication: ASTHMA
     Route: 048
     Dates: start: 19990305
  4. SINGULAIR [Suspect]
     Route: 048
     Dates: end: 20060101
  5. ALBUTEROL [Concomitant]
     Route: 065
  6. FLOVENT [Concomitant]
     Route: 065

REACTIONS (4)
  - ASTHMA [None]
  - COMPLETED SUICIDE [None]
  - DEPRESSION [None]
  - INSOMNIA [None]
